FAERS Safety Report 8579874 (Version 7)
Quarter: 2013Q3

REPORT INFORMATION
  Report Type: Report from Study
  Country: US (occurrence: US)
  Receive Date: 20120525
  Receipt Date: 20130814
  Transmission Date: 20140515
  Serious: Yes (Hospitalization, Other)
  Sender: FDA-Public Use
  Company Number: US-UCBSA-056162

PATIENT
  Age: 41 Year
  Sex: Female
  Weight: 57.2 kg

DRUGS (20)
  1. CIMZIA [Suspect]
     Indication: CROHN^S DISEASE
     Dosage: MAINTENANCE PHASE
     Route: 058
     Dates: start: 20100413, end: 20110623
  2. CIPRO [Concomitant]
     Indication: CROHN^S DISEASE
     Dates: start: 20101105
  3. CORTIFOAM [Concomitant]
     Indication: CROHN^S DISEASE
     Dates: start: 20101105
  4. ACETAMINOPHEN [Concomitant]
     Indication: CROHN^S DISEASE
  5. ACETAMINOPHEN [Concomitant]
     Indication: CROHN^S DISEASE
     Dosage: DAILY DOSE: 325 MG
  6. ENTOCORT [Concomitant]
     Indication: CROHN^S DISEASE
  7. ENTOCORT [Concomitant]
     Indication: CROHN^S DISEASE
  8. COLESTID [Concomitant]
     Dosage: .05%
     Route: 048
  9. PROTOPIC [Concomitant]
     Dosage: 1% OINTMENT, 1 APPLICATION BID
     Route: 061
  10. FISH OIL [Concomitant]
     Dosage: 500 MG CAPSULE
  11. TEMOVATE [Concomitant]
     Dosage: 0.05% OINTMENT : 1 APPLICATION AS DIRECTED
     Route: 061
  12. LOMOTIL [Concomitant]
     Indication: DIARRHOEA
     Dosage: 2.5 - .025 MG TABLET
     Route: 048
  13. CITRUCEL SUGAR FREE [Concomitant]
     Indication: CONSTIPATION
     Dosage: 1 HEAPING TABLE SPOON IN ONLY 4 OZ. WATER, MAY ICREAST TO TWICE DAILY
     Route: 048
  14. METROGEL [Concomitant]
     Dosage: 1 % GEL:
     Route: 061
  15. ZINC OXIDE [Concomitant]
     Indication: DRY SKIN
     Route: 061
  16. EMLA [Concomitant]
     Route: 061
  17. ATIVAN [Concomitant]
     Indication: ANXIETY
     Dosage: 2 MG AS DIRECTED
     Route: 048
  18. ATIVAN [Concomitant]
     Indication: ANXIETY
     Dosage: 0.5 MG TABLET , EVERY 6 HOURS PRN
     Route: 048
     Dates: start: 20110907
  19. VALIUM [Concomitant]
     Dosage: 2.5 MG TAB 45 MIN BEFORE PROCEDURE
     Route: 048
  20. TYLENOL [Concomitant]
     Dosage: DOSE: 325 MG AS NEEDED

REACTIONS (1)
  - Papillary thyroid cancer [Recovered/Resolved]
